FAERS Safety Report 8490500-X (Version None)
Quarter: 2012Q3

REPORT INFORMATION
  Report Type: 
  Country: None (occurrence: None)
  Receive Date: 20120705
  Receipt Date: 20120702
  Transmission Date: 20120928
  Serious: Yes (Hospitalization)
  Sender: FDA-Public Use
  Company Number: ES-ROCHE-1083962

PATIENT
  Age: 62 Year
  Sex: Female

DRUGS (6)
  1. OMEPRAZOLE [Concomitant]
     Dates: start: 20120701
  2. AUGMENTIN '125' [Concomitant]
     Dates: start: 20120701
  3. IBUPROFEN [Concomitant]
     Dates: start: 20120701
  4. HEPARIN [Concomitant]
     Dates: start: 20120701
  5. VEMURAFENIB [Suspect]
     Indication: MALIGNANT MELANOMA
  6. COLCHICINE [Concomitant]
     Dates: start: 20120701

REACTIONS (1)
  - PERICARDITIS [None]
